FAERS Safety Report 9497009 (Version 1)
Quarter: 2013Q3

REPORT INFORMATION
  Report Type: Spontaneous
  Country: US (occurrence: None)
  Receive Date: 20130903
  Receipt Date: 20130903
  Transmission Date: 20140515
  Serious: Yes (Other)
  Sender: FDA-Public Use
  Company Number: None

PATIENT
  Age: 61 Year
  Sex: Female
  Weight: 68.04 kg

DRUGS (1)
  1. LEVOTHYROXINE/ [Suspect]
     Dosage: 1 PILL ONCE DAILY TAKEN BY MOUTH?112 MCG AND 100 MCG.
     Route: 048

REACTIONS (5)
  - Feeling abnormal [None]
  - Product quality issue [None]
  - Product taste abnormal [None]
  - Blood thyroid stimulating hormone decreased [None]
  - Product substitution issue [None]
